FAERS Safety Report 6836520-X (Version None)
Quarter: 2010Q3

REPORT INFORMATION
  Report Type: 
  Country: None (occurrence: None)
  Receive Date: 20100713
  Receipt Date: 20100602
  Transmission Date: 20110219
  Serious: No
  Sender: FDA-Public Use
  Company Number: -BAUSCH-2010BL003629

PATIENT
  Age: 47 Year
  Sex: Female

DRUGS (1)
  1. ZIRGAN [Suspect]
     Indication: KERATITIS HERPETIC
     Route: 047
     Dates: start: 20100601, end: 20100601

REACTIONS (2)
  - EYE IRRITATION [None]
  - OCULAR HYPERAEMIA [None]
